FAERS Safety Report 13133976 (Version 2)
Quarter: 2017Q1

REPORT INFORMATION
  Report Type: Spontaneous
  Country: US (occurrence: US)
  Receive Date: 20170120
  Receipt Date: 20170302
  Transmission Date: 20170428
  Serious: Yes (Other)
  Sender: FDA-Public Use
  Company Number: US-SAOL THERAPEUTICS-2016SAO01262

PATIENT
  Sex: Female
  Weight: 67.12 kg

DRUGS (2)
  1. BACLOFEN. [Suspect]
     Active Substance: BACLOFEN
     Indication: MUSCLE SPASTICITY
     Dosage: 4000 ?G, \DAY
     Route: 037
     Dates: start: 20130205, end: 20151028
  2. BACLOFEN. [Suspect]
     Active Substance: BACLOFEN
     Indication: STIFF PERSON SYNDROME

REACTIONS (2)
  - Central nervous system lesion [Unknown]
  - Therapy non-responder [Unknown]
